FAERS Safety Report 9677895 (Version 1)
Quarter: 2013Q4

REPORT INFORMATION
  Report Type: Spontaneous
  Country: FR (occurrence: FR)
  Receive Date: 20131108
  Receipt Date: 20131108
  Transmission Date: 20140711
  Serious: Yes (Hospitalization, Other)
  Sender: FDA-Public Use
  Company Number: FR-ABBVIE-13P-056-1164458-00

PATIENT
  Age: 33 Year
  Sex: Female

DRUGS (8)
  1. HUMIRA [Suspect]
     Indication: CROHN^S DISEASE
     Dates: start: 201304
  2. HUMIRA [Suspect]
     Indication: ANKYLOSING SPONDYLITIS
  3. METOJECT [Suspect]
     Indication: CROHN^S DISEASE
  4. METOJECT [Suspect]
     Indication: ANKYLOSING SPONDYLITIS
  5. PREDNISONE [Concomitant]
     Indication: ANKYLOSING SPONDYLITIS
     Route: 048
     Dates: start: 201306
  6. SPECIAFOLDINE [Concomitant]
     Indication: PRODUCT USED FOR UNKNOWN INDICATION
     Route: 048
  7. INEXIUM [Concomitant]
     Indication: PRODUCT USED FOR UNKNOWN INDICATION
     Route: 048
  8. IXPRIM [Concomitant]
     Indication: PRODUCT USED FOR UNKNOWN INDICATION
     Dosage: DF: 37.5/325 MG

REACTIONS (5)
  - Amaurosis fugax [Recovered/Resolved]
  - Transient ischaemic attack [Unknown]
  - Executive dysfunction [Unknown]
  - Attention deficit/hyperactivity disorder [Unknown]
  - Anxiety [Recovered/Resolved]
